FAERS Safety Report 6038921-9 (Version None)
Quarter: 2009Q1

REPORT INFORMATION
  Report Type: 
  Country: None (occurrence: None)
  Receive Date: 20090115
  Receipt Date: 20090113
  Transmission Date: 20090719
  Serious: Yes (Hospitalization)
  Sender: FDA-Public Use
  Company Number: DE-ABBOTT-09P-062-0496922-00

PATIENT
  Sex: Female
  Weight: 73 kg

DRUGS (4)
  1. HUMIRA [Suspect]
     Indication: RHEUMATOID ARTHRITIS
     Route: 050
  2. PREDNISOLONE [Concomitant]
     Indication: RHEUMATOID ARTHRITIS
     Route: 048
  3. VIT D 880 IU / CA 2+ 1000 [Concomitant]
     Indication: RHEUMATOID ARTHRITIS
     Route: 048
  4. VOLTAREN [Concomitant]
     Indication: ARTHRALGIA
     Dosage: IF NECESSARY
     Route: 048

REACTIONS (4)
  - APHASIA [None]
  - CAROTID ARTERY STENOSIS [None]
  - CAROTID ARTERY STENT INSERTION [None]
  - CEREBROVASCULAR ACCIDENT [None]
